FAERS Safety Report 13459932 (Version 1)
Quarter: 2017Q2

REPORT INFORMATION
  Report Type: Spontaneous
  Country: GB (occurrence: GB)
  Receive Date: 20170420
  Receipt Date: 20170420
  Transmission Date: 20170830
  Serious: Yes (Hospitalization)
  Sender: FDA-Public Use
  Company Number: GB-TORRENT-00015172

PATIENT
  Age: 47 Year
  Sex: Male

DRUGS (6)
  1. LACTULOSE. [Concomitant]
     Active Substance: LACTULOSE
  2. OMEPRAZOLE SODIUM [Concomitant]
     Active Substance: OMEPRAZOLE SODIUM
  3. SODIUM VALPROATE [Concomitant]
     Active Substance: VALPROATE SODIUM
  4. OLANZAPINE. [Suspect]
     Active Substance: OLANZAPINE
  5. FOLIC ACID. [Concomitant]
     Active Substance: FOLIC ACID
  6. THIAMINE. [Concomitant]
     Active Substance: THIAMINE

REACTIONS (2)
  - Type 2 diabetes mellitus [Unknown]
  - Blood sodium decreased [Unknown]

NARRATIVE: CASE EVENT DATE: 20170326
